FAERS Safety Report 13835490 (Version 1)
Quarter: 2017Q3

REPORT INFORMATION
  Report Type: Spontaneous
  Country: US (occurrence: US)
  Receive Date: 20170804
  Receipt Date: 20170804
  Transmission Date: 20171127
  Serious: Yes (Disabling)
  Sender: FDA-Public Use
  Company Number: None

PATIENT
  Age: 69 Year
  Weight: 115.6 kg

DRUGS (23)
  1. MONTELUKAST [Concomitant]
     Active Substance: MONTELUKAST SODIUM
  2. ASPIRIN. [Concomitant]
     Active Substance: ASPIRIN
  3. SENSIPAR [Concomitant]
     Active Substance: CINACALCET HYDROCHLORIDE
  4. ROPINIROLE. [Concomitant]
     Active Substance: ROPINIROLE
  5. RECLAST [Suspect]
     Active Substance: ZOLEDRONIC ACID
     Indication: OSTEOPOROSIS
     Dosage: ?          OTHER FREQUENCY:ONCE;?
     Route: 042
  6. SYMBICORT [Concomitant]
     Active Substance: BUDESONIDE\FORMOTEROL FUMARATE DIHYDRATE
  7. FENOFIBRATE. [Concomitant]
     Active Substance: FENOFIBRATE
  8. AMLODIPINE [Concomitant]
     Active Substance: AMLODIPINE BESYLATE
  9. LIPITOR [Concomitant]
     Active Substance: ATORVASTATIN CALCIUM
  10. LEVOTHYROXINE. [Concomitant]
     Active Substance: LEVOTHYROXINE
  11. CO-Q10 [Concomitant]
  12. VITAMIN D [Concomitant]
     Active Substance: CHOLECALCIFEROL
  13. RAMIPRIL. [Concomitant]
     Active Substance: RAMIPRIL
  14. DONEPEZIL. [Concomitant]
     Active Substance: DONEPEZIL
  15. FOLIC ACID. [Concomitant]
     Active Substance: FOLIC ACID
  16. NEXIUM [Concomitant]
     Active Substance: ESOMEPRAZOLE MAGNESIUM
  17. METFORMIN [Concomitant]
     Active Substance: METFORMIN HYDROCHLORIDE
  18. LEVEMIR [Concomitant]
     Active Substance: INSULIN DETEMIR
  19. FUROSEMIDE. [Concomitant]
     Active Substance: FUROSEMIDE
  20. PROAIR HFA [Concomitant]
     Active Substance: ALBUTEROL SULFATE
  21. VICTOZA [Concomitant]
     Active Substance: LIRAGLUTIDE
  22. LEVETIRACETAM. [Concomitant]
     Active Substance: LEVETIRACETAM
  23. NAMENDA [Concomitant]
     Active Substance: MEMANTINE HYDROCHLORIDE

REACTIONS (10)
  - Fatigue [None]
  - Feeling of body temperature change [None]
  - Chills [None]
  - Headache [None]
  - Arthralgia [None]
  - Oedema peripheral [None]
  - Myalgia [None]
  - Pain in extremity [None]
  - Movement disorder [None]
  - Bone pain [None]

NARRATIVE: CASE EVENT DATE: 20170728
